FAERS Safety Report 4308169-4 (Version None)
Quarter: 2004Q1

REPORT INFORMATION
  Report Type: 
  Country: None (occurrence: None)
  Receive Date: 20040301
  Receipt Date: 20030718
  Transmission Date: 20041129
  Serious: No
  Sender: FDA-Public Use
  Company Number: US-BRISTOL-MYERS SQUIBB COMPANY-12330346

PATIENT
  Age: 57 Year
  Sex: Female

DRUGS (4)
  1. GLUCOPHAGE [Suspect]
  2. INSULIN [Concomitant]
  3. NEURONTIN [Concomitant]
  4. OXYCODONE HCL [Concomitant]

REACTIONS (1)
  - DIARRHOEA [None]
